FAERS Safety Report 19174154 (Version 1)
Quarter: 2021Q2

REPORT INFORMATION
  Report Type: Spontaneous
  Country: CA (occurrence: CA)
  Receive Date: 20210423
  Receipt Date: 20210423
  Transmission Date: 20210717
  Serious: Yes (Other)
  Sender: FDA-Public Use
  Company Number: CA-PFIZER INC-2021422867

PATIENT
  Age: 28 Year
  Sex: Female
  Weight: 154 kg

DRUGS (1)
  1. CELEBREX [Suspect]
     Active Substance: CELECOXIB
     Indication: ANKYLOSING SPONDYLITIS
     Dosage: 1 DF
     Route: 065

REACTIONS (7)
  - Musculoskeletal stiffness [Unknown]
  - Back pain [Unknown]
  - Respiratory tract infection [Unknown]
  - Drug ineffective [Unknown]
  - Chest discomfort [Unknown]
  - Pain in extremity [Unknown]
  - Paraesthesia [Unknown]

NARRATIVE: CASE EVENT DATE: 202004
